FAERS Safety Report 16757911 (Version 3)
Quarter: 2019Q3

REPORT INFORMATION
  Report Type: Spontaneous
  Country: BR (occurrence: BR)
  Receive Date: 20190830
  Receipt Date: 20190913
  Transmission Date: 20191005
  Serious: Yes (Other)
  Sender: FDA-Public Use
  Company Number: BR-ROCHE-2395175

PATIENT
  Age: 64 Year
  Sex: Female

DRUGS (4)
  1. LOSARTAN. [Concomitant]
     Active Substance: LOSARTAN
     Route: 065
  2. TOCILIZUMAB. [Suspect]
     Active Substance: TOCILIZUMAB
     Indication: RHEUMATOID ARTHRITIS
     Route: 065
     Dates: start: 2011
  3. FUROSEMIDE. [Concomitant]
     Active Substance: FUROSEMIDE
  4. HYDROCHLOROTHIAZIDE. [Concomitant]
     Active Substance: HYDROCHLOROTHIAZIDE
     Route: 065

REACTIONS (8)
  - Abdominal pain [Unknown]
  - Arthritis [Unknown]
  - Diverticulitis [Unknown]
  - Colostomy [Unknown]
  - Oedema [Unknown]
  - Pyrexia [Unknown]
  - Nausea [Unknown]
  - Crystal arthropathy [Unknown]

NARRATIVE: CASE EVENT DATE: 2016
